FAERS Safety Report 13689706 (Version 1)
Quarter: 2017Q2

REPORT INFORMATION
  Report Type: Spontaneous
  Country: SE (occurrence: SE)
  Receive Date: 20170626
  Receipt Date: 20170626
  Transmission Date: 20170830
  Serious: Yes (Hospitalization)
  Sender: FDA-Public Use
  Company Number: SE-TEVA-779085ISR

PATIENT
  Age: 93 Year
  Sex: Female

DRUGS (4)
  1. ELIQUIS [Concomitant]
     Active Substance: APIXABAN
     Indication: CARDIAC FAILURE CONGESTIVE
  2. IMPUGAN [Suspect]
     Active Substance: FUROSEMIDE
     Indication: HYPERTENSION
     Dosage: 60 MILLIGRAM DAILY;
     Dates: start: 2016
  3. BISOPROLOL [Concomitant]
     Active Substance: BISOPROLOL
     Indication: CARDIAC FAILURE CONGESTIVE
  4. CANDEXITIL [Concomitant]
     Indication: CARDIAC FAILURE CONGESTIVE

REACTIONS (13)
  - Fatigue [Unknown]
  - Renal function test abnormal [Unknown]
  - Dehydration [Unknown]
  - Oedema [Unknown]
  - Ageusia [Unknown]
  - Asthenia [Unknown]
  - Myalgia [Unknown]
  - Gastrointestinal disorder [Unknown]
  - Dry mouth [Unknown]
  - Drain removal [Unknown]
  - Pain in extremity [Unknown]
  - Arthralgia [Unknown]
  - Muscle atrophy [Unknown]

NARRATIVE: CASE EVENT DATE: 201605
